FAERS Safety Report 12280950 (Version 1)
Quarter: 2016Q2

REPORT INFORMATION
  Report Type: Spontaneous
  Country: US (occurrence: None)
  Receive Date: 20160418
  Receipt Date: 20160418
  Transmission Date: 20160815
  Serious: Yes (Other)
  Sender: FDA-Public Use
  Company Number: None

PATIENT
  Age: 72 Year
  Sex: Female
  Weight: 78.02 kg

DRUGS (1)
  1. CIPROFLOXACIN HCL [Suspect]
     Active Substance: CIPROFLOXACIN HYDROCHLORIDE
     Indication: URINARY TRACT INFECTION
     Dosage: 500 MG TAB 10 TABS 2 X DAILY MOUTH
     Route: 048
     Dates: start: 20150811, end: 20150815

REACTIONS (3)
  - Tendonitis [None]
  - Vision blurred [None]
  - Inflammation [None]

NARRATIVE: CASE EVENT DATE: 20150817
